FAERS Safety Report 8531436-5 (Version None)
Quarter: 2012Q3

REPORT INFORMATION
  Report Type: 
  Country: None (occurrence: None)
  Receive Date: 20120723
  Receipt Date: 20120712
  Transmission Date: 20120928
  Serious: Yes (Hospitalization, Other)
  Sender: FDA-Public Use
  Company Number: US-VERTEX PHARMACEUTICALS INC.-AE-2012-006774

PATIENT
  Sex: Female

DRUGS (3)
  1. RIBAVIRIN [Concomitant]
     Indication: HEPATITIS C
     Dates: start: 20120310
  2. INCIVEK [Suspect]
     Indication: HEPATITIS C
     Route: 048
     Dates: start: 20120310, end: 20120602
  3. PEGASYS [Concomitant]
     Indication: HEPATITIS C
     Dates: start: 20120310

REACTIONS (15)
  - ANAEMIA [None]
  - COUGH [None]
  - DEHYDRATION [None]
  - LABORATORY TEST ABNORMAL [None]
  - VOMITING [None]
  - ABDOMINAL PAIN [None]
  - NAUSEA [None]
  - EPISTAXIS [None]
  - PLATELET COUNT DECREASED [None]
  - DIARRHOEA [None]
  - STOMATITIS [None]
  - PNEUMONIA [None]
  - FALL [None]
  - CONCUSSION [None]
  - HAEMOPTYSIS [None]
